FAERS Safety Report 20114277 (Version 2)
Quarter: 2022Q2

REPORT INFORMATION
  Report Type: Spontaneous
  Country: US (occurrence: US)
  Receive Date: 20211125
  Receipt Date: 20220629
  Transmission Date: 20220721
  Serious: Yes (Other)
  Sender: FDA-Public Use
  Company Number: US-GILEAD-2021-0557131

PATIENT
  Age: 57 Year
  Sex: Male
  Weight: 101.13 kg

DRUGS (13)
  1. TRUVADA [Suspect]
     Active Substance: EMTRICITABINE\TENOFOVIR DISOPROXIL FUMARATE
     Indication: Prophylaxis against HIV infection
     Dosage: UNK
     Route: 048
     Dates: start: 2017
  2. TRUVADA [Suspect]
     Active Substance: EMTRICITABINE\TENOFOVIR DISOPROXIL FUMARATE
     Dosage: UNK
     Route: 048
     Dates: start: 201903, end: 201910
  3. DESCOVY [Concomitant]
     Active Substance: EMTRICITABINE\TENOFOVIR ALAFENAMIDE FUMARATE
  4. OLMESARTAN [Concomitant]
     Active Substance: OLMESARTAN
  5. CRESTOR [Concomitant]
     Active Substance: ROSUVASTATIN CALCIUM
  6. ZETIA [Concomitant]
     Active Substance: EZETIMIBE
  7. NORVASC [Concomitant]
     Active Substance: AMLODIPINE BESYLATE
  8. OMEPRAZOLE [Concomitant]
     Active Substance: OMEPRAZOLE
  9. ANASTROZOLE [Concomitant]
     Active Substance: ANASTROZOLE
  10. TESTOSTERONE [Concomitant]
     Active Substance: TESTOSTERONE
  11. VASCEPA [Concomitant]
     Active Substance: ICOSAPENT ETHYL
  12. VALSARTAN [Concomitant]
     Active Substance: VALSARTAN
  13. VYTORIN [Concomitant]
     Active Substance: EZETIMIBE\SIMVASTATIN

REACTIONS (7)
  - Renal impairment [Not Recovered/Not Resolved]
  - Glomerular filtration rate abnormal [Unknown]
  - Pain [Not Recovered/Not Resolved]
  - Emotional distress [Not Recovered/Not Resolved]
  - Anxiety [Not Recovered/Not Resolved]
  - Anhedonia [Not Recovered/Not Resolved]
  - Blood creatinine increased [Unknown]

NARRATIVE: CASE EVENT DATE: 20190901
